FAERS Safety Report 17025466 (Version 3)
Quarter: 2020Q1

REPORT INFORMATION
  Report Type: Report from Study
  Country: GB (occurrence: GB)
  Receive Date: 20191113
  Receipt Date: 20200228
  Transmission Date: 20200409
  Serious: Yes (Other)
  Sender: FDA-Public Use
  Company Number: NVSC2019GB031611

PATIENT
  Age: 46 Year
  Sex: Female
  Weight: 52 kg

DRUGS (3)
  1. MIRABEGRON [Concomitant]
     Active Substance: MIRABEGRON
     Indication: PRODUCT USED FOR UNKNOWN INDICATION
     Dosage: 50 MG, QD
     Route: 048
  2. NITROFURANTOIN. [Concomitant]
     Active Substance: NITROFURANTOIN
     Indication: PRODUCT USED FOR UNKNOWN INDICATION
     Dosage: 100 MG, QD
     Route: 048
  3. GILENYA [Suspect]
     Active Substance: FINGOLIMOD HYDROCHLORIDE
     Indication: MULTIPLE SCLEROSIS
     Dosage: 0.5 MG, QD
     Route: 048
     Dates: start: 20191106

REACTIONS (8)
  - Palpitations [Unknown]
  - Sinus tachycardia [Recovered/Resolved]
  - Tremor [Unknown]
  - Blood pressure diastolic decreased [Recovering/Resolving]
  - Nausea [Recovered/Resolved]
  - Ventricular extrasystoles [Recovered/Resolved]
  - Feeling hot [Recovered/Resolved]
  - Electrocardiogram abnormal [Recovered/Resolved]

NARRATIVE: CASE EVENT DATE: 20191106
